FAERS Safety Report 23180932 (Version 11)
Quarter: 2025Q2

REPORT INFORMATION
  Report Type: Report from Study
  Country: CA (occurrence: CA)
  Receive Date: 20231114
  Receipt Date: 20250507
  Transmission Date: 20250717
  Serious: Yes (Other)
  Sender: BIOCON
  Company Number: CA-MYLANLABS-2023M1120510

PATIENT

DRUGS (4)
  1. HULIO [Suspect]
     Active Substance: ADALIMUMAB-FKJP
     Indication: Crohn^s disease
     Route: 058
     Dates: start: 20231005
  2. HULIO [Suspect]
     Active Substance: ADALIMUMAB-FKJP
     Route: 058
     Dates: start: 20231005
  3. HULIO [Suspect]
     Active Substance: ADALIMUMAB-FKJP
     Route: 065
     Dates: start: 20250306
  4. HULIO [Suspect]
     Active Substance: ADALIMUMAB-FKJP
     Route: 065

REACTIONS (21)
  - Fall [Unknown]
  - Crohn^s disease [Unknown]
  - Skin fissures [Unknown]
  - Hypoaesthesia [Unknown]
  - Myocardial infarction [Unknown]
  - Feeling abnormal [Unknown]
  - Cardiac disorder [Unknown]
  - Anal incontinence [Unknown]
  - Diarrhoea [Recovered/Resolved]
  - Proctalgia [Unknown]
  - Illness [Unknown]
  - Abscess [Unknown]
  - Dermal cyst [Not Recovered/Not Resolved]
  - Rash [Unknown]
  - Pyrexia [Recovered/Resolved]
  - Injection site bruising [Recovering/Resolving]
  - Therapeutic response shortened [Unknown]
  - Drug ineffective [Unknown]
  - Wrong technique in product usage process [Unknown]
  - Incorrect dose administered [Unknown]
  - Off label use [Unknown]
